FAERS Safety Report 9488247 (Version 2)
Quarter: 2013Q3

REPORT INFORMATION
  Report Type: Report from Study
  Country: DE (occurrence: DE)
  Receive Date: 20130829
  Receipt Date: 20130919
  Transmission Date: 20140515
  Serious: Yes (Hospitalization)
  Sender: FDA-Public Use
  Company Number: DE-ROCHE-1265789

PATIENT
  Age: 53 Year
  Sex: Female
  Weight: 88 kg

DRUGS (7)
  1. BEVACIZUMAB [Suspect]
     Indication: COLORECTAL CANCER METASTATIC
     Dosage: DATE OF LAST ADMINISTRATION PRIOR TO SAE: 18/FEB/2013 WITH DOSE 7.5 MG/KG
     Route: 042
     Dates: start: 20120314
  2. CAPECITABINE [Suspect]
     Indication: COLORECTAL CANCER METASTATIC
     Dosage: DATE OF LAST ADMINISTRATION RIOR TO SAE: 18/FEB/2013 WITH DOSE 1600 MG/M2
     Route: 048
     Dates: start: 20121217
  3. OXALIPLATIN [Suspect]
     Indication: COLORECTAL CANCER METASTATIC
     Dosage: DATE OF LAST ADMINISTRATION RIOR TO SAE: 04/OCT/2012 T 85MG/M2
     Route: 042
     Dates: start: 20120314
  4. FOLINIC ACID [Suspect]
     Indication: COLORECTAL CANCER METASTATIC
     Dosage: LEUCOVORIN: DATE OF LAST ADMINISTRATION RIOR TO SAE: 22/OCT/2012 WITH DOSE 200 MG/M2
     Route: 042
     Dates: start: 20120314
  5. FLUOROURACIL [Suspect]
     Indication: COLORECTAL CANCER METASTATIC
     Dosage: DATE OF LAST ADMINISTRATION RIOR TO SAE: 18/FEB/2013 WITH DOSE 3200 MG/M2
     Route: 042
     Dates: start: 20120314
  6. L-THYROX [Concomitant]
     Indication: HYPOTHYROIDISM
     Dosage: 2X1/2 DAILY
     Route: 048
  7. SIOFOR [Concomitant]
     Indication: TYPE 2 DIABETES MELLITUS
     Dosage: 2-0-1
     Route: 048

REACTIONS (2)
  - Bronchopneumonia [Recovered/Resolved]
  - Body temperature increased [Recovered/Resolved]
